FAERS Safety Report 7750285-9 (Version None)
Quarter: 2011Q3

REPORT INFORMATION
  Report Type: 
  Country: None (occurrence: None)
  Receive Date: 20110914
  Receipt Date: 20110901
  Transmission Date: 20111222
  Serious: Yes (Hospitalization, Other)
  Sender: FDA-Public Use
  Company Number: US-ELI_LILLY_AND_COMPANY-US201007001788

PATIENT
  Sex: Female
  Weight: 62.585 kg

DRUGS (9)
  1. EVISTA [Concomitant]
  2. PROSCAR [Concomitant]
  3. GLUCOSAMINE [Concomitant]
  4. FORTEO [Suspect]
     Indication: OSTEOPOROSIS
     Dosage: 20 UG, DAILY (1/D)
     Dates: start: 20100420, end: 20110525
  5. PROZAC [Concomitant]
  6. FORTEO [Suspect]
     Dosage: 20 UG, QD
     Dates: start: 20110601
  7. CALCIUM W/VITAMIN D NOS [Concomitant]
  8. ASPIRIN [Concomitant]
  9. MULTI-VITAMIN [Concomitant]

REACTIONS (5)
  - HEAD INJURY [None]
  - FALL [None]
  - CEREBRAL HAEMORRHAGE [None]
  - CONCUSSION [None]
  - DIZZINESS [None]
